FAERS Safety Report 8680326 (Version 2)
Quarter: 2012Q4

REPORT INFORMATION
  Report Type: 
  Country: US (occurrence: US)
  Receive Date: 20120724
  Receipt Date: 20121128
  Transmission Date: 20130627
  Serious: Yes (Other)
  Sender: FDA-Public Use
  Company Number: US-ACTELION-A-NJ2012-59627

PATIENT
  Age: 77 Year
  Sex: Female

DRUGS (2)
  1. TRACLEER [Suspect]
     Indication: PULMONARY ARTERIAL HYPERTENSION
     Dosage: UNK
     Route: 048
     Dates: start: 201111
  2. TIKOSYN [Concomitant]

REACTIONS (10)
  - Procedural pain [Unknown]
  - Anaesthetic complication [Unknown]
  - Confusional state [Unknown]
  - Balance disorder [Unknown]
  - Fall [Unknown]
  - Musculoskeletal chest pain [Unknown]
  - Chest pain [Unknown]
  - Muscular weakness [Unknown]
  - Vomiting [Unknown]
  - Diarrhoea [Unknown]
